FAERS Safety Report 23570923 (Version 5)
Quarter: 2025Q2

REPORT INFORMATION
  Report Type: Spontaneous
  Country: IN (occurrence: IN)
  Receive Date: 20240227
  Receipt Date: 20250402
  Transmission Date: 20250716
  Serious: Yes (Hospitalization, Other)
  Sender: SANDOZ
  Company Number: IN-SANDOZ-SDZ2023IN068823

PATIENT
  Age: 26 Year
  Sex: Male

DRUGS (9)
  1. MYFORTIC [Suspect]
     Active Substance: MYCOPHENOLATE SODIUM
     Dosage: 360 MG, TID
     Route: 048
  2. MYFORTIC [Suspect]
     Active Substance: MYCOPHENOLATE SODIUM
     Indication: Renal transplant
     Dosage: 360 MG, TID
     Route: 048
  3. TACROLIMUS [Suspect]
     Active Substance: TACROLIMUS
     Dosage: 2 MG, BID
     Route: 048
  4. TACROLIMUS [Suspect]
     Active Substance: TACROLIMUS
     Dosage: 2 MG, BID
     Route: 048
  5. TACROLIMUS [Suspect]
     Active Substance: TACROLIMUS
     Dosage: 4.5 MG, QD
     Route: 048
  6. TACROLIMUS [Suspect]
     Active Substance: TACROLIMUS
     Route: 048
  7. TACROLIMUS [Suspect]
     Active Substance: TACROLIMUS
     Dosage: 5 MG, QD
     Route: 048
  8. TACROLIMUS [Suspect]
     Active Substance: TACROLIMUS
     Route: 048
  9. TACROLIMUS [Suspect]
     Active Substance: TACROLIMUS
     Indication: Renal transplant
     Route: 065

REACTIONS (16)
  - Hospitalisation [Unknown]
  - White blood cell disorder [Unknown]
  - Blood albumin abnormal [Unknown]
  - Blood thyroid stimulating hormone abnormal [Unknown]
  - Haemoglobin abnormal [Unknown]
  - Vitamin D abnormal [Unknown]
  - Urine analysis abnormal [Unknown]
  - Blood creatine abnormal [Unknown]
  - Blood potassium abnormal [Unknown]
  - Blood urea abnormal [Unknown]
  - Blood phosphorus abnormal [Unknown]
  - Blood sodium abnormal [Unknown]
  - Pain [Unknown]
  - Hypertension [Unknown]
  - Off label use [Unknown]
  - Product prescribing error [Unknown]

NARRATIVE: CASE EVENT DATE: 20250201
